FAERS Safety Report 8980589 (Version 2)
Quarter: 2013Q1

REPORT INFORMATION
  Report Type: Spontaneous
  Country: ES (occurrence: ES)
  Receive Date: 20121221
  Receipt Date: 20130204
  Transmission Date: 20140127
  Serious: Yes (Other)
  Sender: FDA-Public Use
  Company Number: ES-VERTEX PHARMACEUTICALS INC.-2012-026537

PATIENT
  Age: 62 Year
  Sex: Female

DRUGS (4)
  1. INCIVO [Suspect]
     Indication: HEPATITIS C
     Dosage: DOSAGE FORM: TABLET
     Dates: start: 201211
  2. RIBAVIRIN [Concomitant]
     Dosage: 2 DF, UNK
     Dates: start: 201211, end: 201211
  3. RIBAVIRIN [Concomitant]
     Dosage: 1 DF, BID
     Dates: start: 201212
  4. PEGINTERFERON ALFA [Concomitant]
     Indication: HEPATITIS C
     Dosage: 1 DF, QW
     Route: 058
     Dates: start: 201211

REACTIONS (3)
  - Renal impairment [Not Recovered/Not Resolved]
  - Face oedema [Unknown]
  - Anaemia [Not Recovered/Not Resolved]
